FAERS Safety Report 6786661-0 (Version None)
Quarter: 2010Q2

REPORT INFORMATION
  Report Type: 
  Country: None (occurrence: None)
  Receive Date: 20100623
  Receipt Date: 20100609
  Transmission Date: 20101027
  Serious: Yes (Hospitalization, Other)
  Sender: FDA-Public Use
  Company Number: US-ELI_LILLY_AND_COMPANY-US201004003339

PATIENT
  Sex: Female
  Weight: 83.8 kg

DRUGS (6)
  1. CYMBALTA [Suspect]
     Indication: MAJOR DEPRESSION
     Dosage: 30 MG, UNK
     Dates: start: 20100323
  2. BUSPAR [Concomitant]
     Dosage: 10 MG, 2/D
  3. NORCO [Concomitant]
     Dosage: UNK, AS NEEDED
  4. XANAX [Concomitant]
     Dosage: 0.25 MG, AS NEEDED
  5. PREVACID [Concomitant]
     Dosage: 30 MG, DAILY (1/D)
  6. YAZ [Concomitant]
     Dosage: 1 UNK, DAILY (1/D)

REACTIONS (9)
  - ASCITES [None]
  - ATRIAL FIBRILLATION [None]
  - DIARRHOEA [None]
  - DRUG INTERACTION [None]
  - ELECTROCARDIOGRAM QT PROLONGED [None]
  - ELECTROCARDIOGRAM ST SEGMENT DEPRESSION [None]
  - HYPERKALAEMIA [None]
  - HYPOMAGNESAEMIA [None]
  - SEROTONIN SYNDROME [None]
